FAERS Safety Report 5120870-1 (Version None)
Quarter: 2006Q4

REPORT INFORMATION
  Report Type: 
  Country: None (occurrence: None)
  Receive Date: 20061005
  Receipt Date: 20051219
  Transmission Date: 20070319
  Serious: No
  Sender: FDA-Public Use
  Company Number: US-BRISTOL-MYERS SQUIBB COMPANY-13222229

PATIENT
  Sex: Male

DRUGS (1)
  1. NADOLOL [Suspect]

REACTIONS (3)
  - AGITATION [None]
  - FATIGUE [None]
  - IRREGULAR SLEEP PHASE [None]
